FAERS Safety Report 14654741 (Version 6)
Quarter: 2018Q3

REPORT INFORMATION
  Report Type: Report from Study
  Country: CA (occurrence: CA)
  Receive Date: 20180319
  Receipt Date: 20180911
  Transmission Date: 20181010
  Serious: Yes (Death, Hospitalization, Other)
  Sender: FDA-Public Use
  Company Number: CA-GLAXOSMITHKLINE-CA2018GSK002128

PATIENT
  Age: 83 Year
  Sex: Female

DRUGS (4)
  1. NUCALA [Suspect]
     Active Substance: MEPOLIZUMAB
     Dosage: UNK
  2. NUCALA [Suspect]
     Active Substance: MEPOLIZUMAB
     Indication: ASTHMA
     Dosage: 100 MG, Z
     Route: 042
  3. NUCALA [Suspect]
     Active Substance: MEPOLIZUMAB
     Dosage: 100 MG, Z, MONTHLY
     Route: 042
  4. SALBUTAMOL SULPHATE [Suspect]
     Active Substance: ALBUTEROL SULFATE
     Indication: PRODUCT USED FOR UNKNOWN INDICATION
     Dosage: UNK UNK, PRN

REACTIONS (17)
  - Vasculitis [Unknown]
  - Secretion discharge [Unknown]
  - Oedema peripheral [Unknown]
  - Wound secretion [Recovered/Resolved]
  - Dyspnoea [Unknown]
  - Asthma [Recovering/Resolving]
  - Cardiac failure [Unknown]
  - Limb injury [Not Recovered/Not Resolved]
  - Wound complication [Recovering/Resolving]
  - Wound infection bacterial [Recovered/Resolved]
  - Arthralgia [Not Recovered/Not Resolved]
  - Anaemia [Unknown]
  - Cataract [Unknown]
  - Death [Fatal]
  - Peripheral swelling [Unknown]
  - Injection site pain [Unknown]
  - Fatigue [Unknown]

NARRATIVE: CASE EVENT DATE: 201711
